FAERS Safety Report 7958984-0 (Version None)
Quarter: 2011Q4

REPORT INFORMATION
  Report Type: 
  Country: None (occurrence: None)
  Receive Date: 20111206
  Receipt Date: 20111121
  Transmission Date: 20120403
  Serious: Yes (Disabling, Other)
  Sender: FDA-Public Use
  Company Number: IL-CELGENEUS-082-50794-11113125

PATIENT
  Age: 82 Year
  Sex: Male

DRUGS (1)
  1. VIDAZA [Suspect]

REACTIONS (4)
  - MYELODYSPLASTIC SYNDROME TRANSFORMATION [None]
  - ACUTE MYELOID LEUKAEMIA [None]
  - BLINDNESS [None]
  - LEUKAEMIC INFILTRATION BRAIN [None]
